FAERS Safety Report 22110401 (Version 1)
Quarter: 2023Q1

REPORT INFORMATION
  Report Type: Spontaneous
  Country: GB (occurrence: GB)
  Receive Date: 20230317
  Receipt Date: 20230317
  Transmission Date: 20230418
  Serious: Yes (Other)
  Sender: FDA-Public Use
  Company Number: GB-MHRA-MED-202303131141020040-HQMKD

PATIENT
  Age: 69 Year
  Sex: Female
  Weight: 56 kg

DRUGS (2)
  1. PALBOCICLIB [Suspect]
     Active Substance: PALBOCICLIB
     Indication: Breast cancer metastatic
     Dosage: 75 MG
     Dates: start: 20180711
  2. LETROZOLE [Concomitant]
     Active Substance: LETROZOLE
     Indication: Breast cancer metastatic
     Dosage: UNK
     Dates: start: 20180701

REACTIONS (2)
  - Alopecia totalis [Not Recovered/Not Resolved]
  - Pain of skin [Unknown]

NARRATIVE: CASE EVENT DATE: 20221201
